FAERS Safety Report 19394687 (Version 1)
Quarter: 2021Q2

REPORT INFORMATION
  Report Type: Report from Study
  Country: BR (occurrence: BR)
  Receive Date: 20210609
  Receipt Date: 20210609
  Transmission Date: 20210717
  Serious: Yes (Life-Threatening, Hospitalization)
  Sender: FDA-Public Use
  Company Number: NVSC2020BR302168

PATIENT
  Sex: Female

DRUGS (2)
  1. ESTRADOT [Suspect]
     Active Substance: ESTRADIOL
     Indication: PRODUCT USED FOR UNKNOWN INDICATION
     Dosage: UNK (50 UG)
     Route: 062
  2. ESTRADOT [Suspect]
     Active Substance: ESTRADIOL
     Dosage: UNK (100 UG)
     Route: 062

REACTIONS (16)
  - Hormone level abnormal [Unknown]
  - Memory impairment [Recovered/Resolved]
  - Panic reaction [Recovered/Resolved]
  - Vomiting [Recovered/Resolved]
  - Nausea [Unknown]
  - Product availability issue [Unknown]
  - Product administration error [Unknown]
  - Tremor [Unknown]
  - Fear [Recovered/Resolved]
  - Malaise [Recovered/Resolved]
  - Wrong technique in product usage process [Not Recovered/Not Resolved]
  - Expired product administered [Recovered/Resolved]
  - Respiratory arrest [Recovered/Resolved]
  - Ill-defined disorder [Unknown]
  - Headache [Recovered/Resolved]
  - Product dose omission issue [Unknown]
